FAERS Safety Report 5288093-3 (Version None)
Quarter: 2007Q1

REPORT INFORMATION
  Report Type: 
  Country: None (occurrence: None)
  Receive Date: 20070330
  Receipt Date: 20070319
  Transmission Date: 20070707
  Serious: Yes (Other)
  Sender: FDA-Public Use
  Company Number: MIN-00153

PATIENT
  Age: 53 Year
  Sex: Male

DRUGS (5)
  1. MINOCYCLINE, UNK. STRENGTH, UNK. MANUFACTURER [Suspect]
     Indication: FOLLICULITIS
     Dosage: 100 MG, QD, PO
     Route: 048
  2. ZIDOVUDINE, UNK. STRENGTH, UNK. MANUFACTURER [Suspect]
     Indication: HIV INFECTION
     Dosage: UNK., UNK., PO
     Route: 048
  3. FLUVASTATIN [Concomitant]
  4. LAMIVUDINE [Concomitant]
  5. NELFINAVIR [Concomitant]

REACTIONS (6)
  - ACQUIRED OESOPHAGEAL WEB [None]
  - DIVERTICULUM OESOPHAGEAL [None]
  - FOREIGN BODY TRAUMA [None]
  - OESOPHAGEAL ULCER [None]
  - OESOPHAGITIS [None]
  - RESPIRATORY RATE INCREASED [None]
